FAERS Safety Report 4500425-X (Version None)
Quarter: 2004Q3

REPORT INFORMATION
  Report Type: 
  Country: None (occurrence: None)
  Receive Date: 20040928
  Receipt Date: 20040730
  Transmission Date: 20050211
  Serious: No
  Sender: FDA-Public Use
  Company Number: 04P-163-0268471-00

PATIENT
  Age: 52 Year
  Sex: Female

DRUGS (4)
  1. HUMIRA [Suspect]
     Indication: RHEUMATOID ARTHRITIS
     Dosage: 40 MG, 1 IN 2 WK, SUBCUTANEOUS
     Route: 058
     Dates: start: 20040701, end: 20040721
  2. METHYLPREDNISOLONE [Concomitant]
  3. CELECOXIB [Concomitant]
  4. OXYCOCET [Concomitant]

REACTIONS (2)
  - HERPES ZOSTER [None]
  - SINUSITIS [None]
